FAERS Safety Report 15001767 (Version 1)
Quarter: 2018Q2

REPORT INFORMATION
  Report Type: Spontaneous
  Country: US (occurrence: US)
  Receive Date: 20180612
  Receipt Date: 20180612
  Transmission Date: 20180711
  Serious: No
  Sender: FDA-Public Use
  Company Number: US-GALDERMA-US18004568

PATIENT
  Age: 36 Year

DRUGS (10)
  1. PROACTIV RENEWING CLEANSER [Concomitant]
     Active Substance: BENZOYL PEROXIDE
     Indication: RASH
     Route: 061
     Dates: start: 20170908
  2. PROACTIV REVITALIZING TONER [Concomitant]
     Indication: RASH
     Route: 061
     Dates: start: 20170908
  3. PROACTIV SOLUTION DAILY PROTECTION PLUS SUNSCREEN SPF 30 [Suspect]
     Active Substance: AVOBENZONE\HOMOSALATE\OCTINOXATE\OCTISALATE\OXYBENZONE
     Indication: RASH
     Route: 061
     Dates: start: 20170908
  4. PROACTIV REPAIRING TREATMENT [Concomitant]
     Active Substance: BENZOYL PEROXIDE
     Indication: RASH
     Route: 061
     Dates: start: 20170908
  5. PROACTIV MD ADAPALENE ACNE TREATMENT [Suspect]
     Active Substance: ADAPALENE
     Indication: RASH
     Dosage: 0.1%
     Route: 061
     Dates: start: 20170908
  6. PROACTIV MD BALANCING TONER [Concomitant]
     Active Substance: COSMETICS
     Indication: RASH
     Route: 061
     Dates: start: 20170908
  7. PROACTIV SKIN PURIFYING MASK [Concomitant]
     Active Substance: SULFUR
     Indication: RASH
     Route: 061
     Dates: start: 20170908
  8. PROACTIV QUICK FIX BLEMISH PEN [Concomitant]
     Active Substance: SULFUR
     Indication: RASH
     Route: 061
     Dates: start: 20170908
  9. PROACTIV MD DEEP CLEANSING FACE WASH [Concomitant]
     Active Substance: COSMETICS
     Indication: RASH
     Route: 061
     Dates: start: 20170908
  10. PROACTIV EMERGENCY BLEMISH RELIEF [Concomitant]
     Active Substance: BENZOYL PEROXIDE
     Indication: RASH
     Route: 061
     Dates: start: 20170908

REACTIONS (3)
  - Product use in unapproved indication [Recovered/Resolved]
  - Acne [Not Recovered/Not Resolved]
  - Dry skin [Not Recovered/Not Resolved]

NARRATIVE: CASE EVENT DATE: 20170908
